FAERS Safety Report 16021885 (Version 2)
Quarter: 2019Q3

REPORT INFORMATION
  Report Type: Spontaneous
  Country: CA (occurrence: CA)
  Receive Date: 20190301
  Receipt Date: 20190722
  Transmission Date: 20191004
  Serious: Yes (Death, Hospitalization, Other)
  Sender: FDA-Public Use
  Company Number: CA-AUROBINDO-AUR-APL-2019-010451

PATIENT

DRUGS (15)
  1. NAPROXEN. [Interacting]
     Active Substance: NAPROXEN
     Indication: PRODUCT USED FOR UNKNOWN INDICATION
     Dosage: UNK
     Route: 065
  2. OXYCONTIN [Interacting]
     Active Substance: OXYCODONE HYDROCHLORIDE
     Indication: PRODUCT USED FOR UNKNOWN INDICATION
     Dosage: UNK
     Route: 065
  3. CYCLOBENZAPRINE TABLETS [Interacting]
     Active Substance: CYCLOBENZAPRINE
     Dosage: 40 MILLIGRAM, ONCE A DAY
     Route: 065
  4. AMITRIPTYLINE [Interacting]
     Active Substance: AMITRIPTYLINE
     Indication: PRODUCT USED FOR UNKNOWN INDICATION
     Dosage: UNK
     Route: 065
  5. FENTANYL. [Interacting]
     Active Substance: FENTANYL
     Dosage: 75 MICROGRAM, 1 EVERY 1 HOUR(S)
     Route: 062
  6. MORPHINE [Interacting]
     Active Substance: MORPHINE
     Indication: PRODUCT USED FOR UNKNOWN INDICATION
     Dosage: 10 MILLIGRAM, UNK
     Route: 065
  7. FENTANYL. [Interacting]
     Active Substance: FENTANYL
     Indication: PRODUCT USED FOR UNKNOWN INDICATION
     Dosage: 150 MICROGRAM 1 EVERY 1 HOUR(S)
     Route: 062
  8. OXYCODONE [Interacting]
     Active Substance: OXYCODONE
     Indication: PRODUCT USED FOR UNKNOWN INDICATION
     Dosage: UNK
     Route: 065
  9. CYCLOBENZAPRINE TABLETS [Suspect]
     Active Substance: CYCLOBENZAPRINE
     Indication: PRODUCT USED FOR UNKNOWN INDICATION
     Dosage: 40 MILLIGRAM, ONCE A DAY
     Route: 065
  10. ENDOCET [Interacting]
     Active Substance: ACETAMINOPHEN\OXYCODONE HYDROCHLORIDE
     Indication: PRODUCT USED FOR UNKNOWN INDICATION
     Dosage: UNK
     Route: 065
  11. ALCOHOL. [Interacting]
     Active Substance: ALCOHOL
     Indication: PRODUCT USED FOR UNKNOWN INDICATION
     Dosage: UNK
     Route: 065
  12. NICOTINE. [Interacting]
     Active Substance: NICOTINE
     Indication: PRODUCT USED FOR UNKNOWN INDICATION
     Dosage: UNK
     Route: 065
  13. OXYNEO [Interacting]
     Active Substance: OXYCODONE
     Indication: PRODUCT USED FOR UNKNOWN INDICATION
     Dosage: UNK
     Route: 065
  14. DILAUDID [Interacting]
     Active Substance: HYDROMORPHONE HYDROCHLORIDE
     Indication: PRODUCT USED FOR UNKNOWN INDICATION
     Dosage: 4 MILLIGRAM, AS REQUIRED
     Route: 065
  15. ACETAMINOPHEN;OXYCODONE HYDROCHLORIDE [Interacting]
     Active Substance: ACETAMINOPHEN\OXYCODONE HYDROCHLORIDE
     Indication: PRODUCT USED FOR UNKNOWN INDICATION
     Dosage: UNK
     Route: 065

REACTIONS (25)
  - Drug interaction [Fatal]
  - Emotional disorder [Fatal]
  - Gastric dilatation [Fatal]
  - Nausea [Fatal]
  - Anxiety [Fatal]
  - Depressed mood [Fatal]
  - Intentional product misuse [Fatal]
  - Myocardial infarction [Fatal]
  - Somnolence [Fatal]
  - Cardiac death [Fatal]
  - Dizziness [Fatal]
  - Overdose [Fatal]
  - Sedation [Fatal]
  - Dysarthria [Fatal]
  - Gait disturbance [Fatal]
  - Paraesthesia [Fatal]
  - Pulmonary oedema [Fatal]
  - Loss of consciousness [Fatal]
  - Malaise [Fatal]
  - Mental impairment [Fatal]
  - Functional gastrointestinal disorder [Fatal]
  - Infection [Fatal]
  - Tachycardia [Fatal]
  - Drug intolerance [Fatal]
  - Respiratory arrest [Fatal]
